FAERS Safety Report 10111783 (Version 1)
Quarter: 2014Q2

REPORT INFORMATION
  Report Type: Spontaneous
  Country: US (occurrence: US)
  Receive Date: 20140425
  Receipt Date: 20140425
  Transmission Date: 20141212
  Serious: No
  Sender: FDA-Public Use
  Company Number: US-LUNDBECK-DKLU1098782

PATIENT
  Age: 34 Year
  Sex: Male

DRUGS (3)
  1. SABRIL     (TABLET) [Suspect]
     Indication: PARTIAL SEIZURES
     Route: 048
     Dates: start: 20140123
  2. KEPPRA [Concomitant]
     Indication: PRODUCT USED FOR UNKNOWN INDICATION
  3. GABAPENTIN [Concomitant]
     Indication: PRODUCT USED FOR UNKNOWN INDICATION

REACTIONS (3)
  - Memory impairment [Unknown]
  - Fatigue [Unknown]
  - Dizziness [Unknown]
